FAERS Safety Report 4699138-3 (Version None)
Quarter: 2005Q2

REPORT INFORMATION
  Report Type: 
  Country: None (occurrence: None)
  Receive Date: 20050623
  Receipt Date: 20050623
  Transmission Date: 20051028
  Serious: Yes (Other)
  Sender: FDA-Public Use
  Company Number: None

PATIENT
  Age: 27 Year
  Sex: Male
  Weight: 174.6349 kg

DRUGS (2)
  1. DOXEPIN 50 MG MYLAN [Suspect]
     Indication: ADJUSTMENT DISORDER
     Dosage: 50 MG/HS PO
     Route: 048
     Dates: start: 20050225, end: 20050621
  2. DOXEPIN 50 MG MYLAN [Suspect]
     Indication: DEPRESSION
     Dosage: 50 MG/HS PO
     Route: 048
     Dates: start: 20050225, end: 20050621

REACTIONS (2)
  - ABDOMINAL PAIN [None]
  - DIARRHOEA [None]
